FAERS Safety Report 7337297-4 (Version None)
Quarter: 2011Q1

REPORT INFORMATION
  Report Type: 
  Country: None (occurrence: None)
  Receive Date: 20110308
  Receipt Date: 20110224
  Transmission Date: 20110831
  Serious: Yes (Hospitalization, Other)
  Sender: FDA-Public Use
  Company Number: US-ELI_LILLY_AND_COMPANY-US201101006809

PATIENT
  Sex: Female
  Weight: 68.481 kg

DRUGS (2)
  1. FORTEO [Suspect]
     Indication: OSTEOPOROSIS
     Dosage: 20 UG, DAILY (1/D)
     Route: 058
     Dates: start: 20100101
  2. FORTEO [Suspect]
     Dosage: 20 UG, DAILY (1/D)

REACTIONS (8)
  - PELVIC FRACTURE [None]
  - GAIT DISTURBANCE [None]
  - STRESS FRACTURE [None]
  - ARTHRALGIA [None]
  - FEMORAL NECK FRACTURE [None]
  - INFLUENZA LIKE ILLNESS [None]
  - DISCOMFORT [None]
  - DRUG DOSE OMISSION [None]
